FAERS Safety Report 22207972 (Version 5)
Quarter: 2023Q2

REPORT INFORMATION
  Report Type: Report from Study
  Country: BR (occurrence: BR)
  Receive Date: 20230413
  Receipt Date: 20230622
  Transmission Date: 20230721
  Serious: Yes (Hospitalization)
  Sender: FDA-Public Use
  Company Number: BR-JNJFOC-20230414323

PATIENT
  Age: 54 Year
  Sex: Female
  Weight: 51.7 kg

DRUGS (10)
  1. TECLISTAMAB [Suspect]
     Active Substance: TECLISTAMAB
     Indication: Plasma cell myeloma
     Route: 058
     Dates: start: 20220719, end: 20230206
  2. TECLISTAMAB [Suspect]
     Active Substance: TECLISTAMAB
     Route: 058
     Dates: start: 20220725, end: 20230308
  3. DARATUMUMAB [Suspect]
     Active Substance: DARATUMUMAB
     Indication: Plasma cell myeloma
     Route: 058
     Dates: start: 20220718, end: 20230308
  4. SODIUM CHLORIDE [Concomitant]
     Active Substance: SODIUM CHLORIDE
     Indication: Productive cough
     Dosage: DOSE: 1 (DOSAGE UNIT NOT PROVIDED)
     Route: 055
     Dates: start: 20220724
  5. ACYCLOVIR [Concomitant]
     Active Substance: ACYCLOVIR
     Indication: Prophylaxis
     Dosage: DOSE: 200 (DOSAGE UNIT NOT PROVIDED)
     Route: 048
     Dates: start: 20220802
  6. SULFAMETHOXAZOLE\TRIMETHOPRIM [Concomitant]
     Active Substance: SULFAMETHOXAZOLE\TRIMETHOPRIM
     Indication: Antifungal prophylaxis
     Dosage: DOSE: 800 (DOSAGE UNIT NOT PROVIDED)
     Route: 048
     Dates: start: 20220802
  7. CAFFEINE\DIPYRONE\ORPHENADRINE [Concomitant]
     Active Substance: CAFFEINE\DIPYRONE\ORPHENADRINE
     Indication: Headache
     Dosage: ACTIVE SUBSTANCES: DIPYRONE, ORPHENADRINE CITRATE, AND CAFFEINE?DOSE: 300 (DOSAGE UNITS NOT PROVIDED
     Route: 048
     Dates: start: 20220901
  8. ENOXAPARIN [Concomitant]
     Active Substance: ENOXAPARIN
     Indication: Thrombosis prophylaxis
     Dosage: DOSE: 40 (DOSAGE UNIT NOT PROVIDED)
     Route: 048
     Dates: start: 20230106
  9. CODEINE [Concomitant]
     Active Substance: CODEINE
     Indication: COVID-19 pneumonia
     Dosage: DOSE: 30 (DOSAGE UNIT NOT PROVIDED)
     Route: 048
     Dates: start: 20230110
  10. DULOXETINE [Concomitant]
     Active Substance: DULOXETINE
     Indication: Paraesthesia
     Dosage: 30 (UNIT NOT PROVIDED)
     Route: 048
     Dates: start: 20230308, end: 20230522

REACTIONS (1)
  - Febrile neutropenia [Recovered/Resolved]

NARRATIVE: CASE EVENT DATE: 20230405
